FAERS Safety Report 4718813-5 (Version None)
Quarter: 2005Q3

REPORT INFORMATION
  Report Type: 
  Country: None (occurrence: None)
  Receive Date: 20050719
  Receipt Date: 20050711
  Transmission Date: 20060218
  Serious: Yes (Hospitalization)
  Sender: FDA-Public Use
  Company Number: S05-USA-03504-01

PATIENT
  Age: 62 Year
  Sex: Female

DRUGS (7)
  1. CAMPRAL [Suspect]
     Indication: ALCOHOLISM
     Dosage: 333 MG QID PO
     Route: 048
     Dates: start: 20050601, end: 20050703
  2. ANTABUSE [Concomitant]
  3. REQUIP [Concomitant]
  4. EFFEXOR [Concomitant]
  5. TRAZODONE HCL [Concomitant]
  6. ESTROGEN [Concomitant]
  7. SEROQUEL [Concomitant]

REACTIONS (5)
  - ABASIA [None]
  - AMNESIA [None]
  - COORDINATION ABNORMAL [None]
  - DYSARTHRIA [None]
  - DYSKINESIA [None]
